FAERS Safety Report 24637956 (Version 1)
Quarter: 2024Q4

REPORT INFORMATION
  Report Type: Report from Study
  Country: CA (occurrence: CA)
  Receive Date: 20241119
  Receipt Date: 20241119
  Transmission Date: 20250114
  Serious: Yes (Hospitalization)
  Sender: SANDOZ
  Company Number: CA-SANDOZ-SDZ2023CA028109

PATIENT
  Age: 69 Year
  Sex: Male

DRUGS (2)
  1. HYRIMOZ [Suspect]
     Active Substance: ADALIMUMAB-ADAZ
     Indication: Rheumatoid arthritis
     Dosage: 40 MG, Q2W (PRE-FILLED PEN)
     Route: 058
     Dates: start: 20211221
  2. HYRIMOZ [Suspect]
     Active Substance: ADALIMUMAB-ADAZ
     Dosage: 40 MG, Q2W (PRE-FILLED SYRINGE)
     Route: 058
     Dates: start: 20211221

REACTIONS (3)
  - Renal disorder [Unknown]
  - Peripheral swelling [Unknown]
  - Pain in extremity [Unknown]

NARRATIVE: CASE EVENT DATE: 20240801
